FAERS Safety Report 6382318-9 (Version None)
Quarter: 2009Q3

REPORT INFORMATION
  Report Type: 
  Country: None (occurrence: None)
  Receive Date: 20090930
  Receipt Date: 20090921
  Transmission Date: 20100115
  Serious: Yes (Hospitalization)
  Sender: FDA-Public Use
  Company Number: US-ASTRAZENECA-2009SE12537

PATIENT
  Age: 53 Year
  Sex: Female

DRUGS (4)
  1. CRESTOR [Suspect]
     Route: 048
     Dates: start: 20090511, end: 20090908
  2. TYLENOL (CAPLET) [Concomitant]
  3. TYLENOL W/ CODEINE [Concomitant]
  4. URSIDIOL [Concomitant]

REACTIONS (4)
  - CHEST PAIN [None]
  - CHOLELITHIASIS [None]
  - HEPATIC ENZYME INCREASED [None]
  - WHITE BLOOD CELL COUNT INCREASED [None]
